FAERS Safety Report 4808963-7 (Version None)
Quarter: 2005Q4

REPORT INFORMATION
  Report Type: 
  Country: None (occurrence: None)
  Receive Date: 20051025
  Receipt Date: 20050217
  Transmission Date: 20060501
  Serious: Yes (Death)
  Sender: FDA-Public Use
  Company Number: JP-BRISTOL-MYERS SQUIBB COMPANY-12868188

PATIENT
  Age: 76 Year
  Sex: Male

DRUGS (4)
  1. VEPESID [Suspect]
     Indication: SMALL CELL LUNG CANCER STAGE UNSPECIFIED
     Route: 042
     Dates: start: 20050204, end: 20050204
  2. PARAPLATIN [Suspect]
     Indication: SMALL CELL LUNG CANCER STAGE UNSPECIFIED
     Route: 042
     Dates: start: 20050204, end: 20050204
  3. GRANISETRON HCL [Concomitant]
     Route: 042
     Dates: start: 20050204, end: 20050204
  4. DEXAMETHASONE SODIUM PHOSPHATE [Concomitant]
     Route: 042
     Dates: start: 20050204, end: 20050204

REACTIONS (1)
  - MESENTERIC OCCLUSION [None]
